FAERS Safety Report 18476557 (Version 1)
Quarter: 2020Q4

REPORT INFORMATION
  Report Type: Spontaneous
  Country: CN (occurrence: CN)
  Receive Date: 20201106
  Receipt Date: 20201106
  Transmission Date: 20210114
  Serious: Yes (Other)
  Sender: FDA-Public Use
  Company Number: CN-BAXTER-2020BAX022478

PATIENT
  Age: 35 Year
  Sex: Female
  Weight: 63 kg

DRUGS (13)
  1. 0.9% SODIUM CHLORIDE INJECTION [Suspect]
     Active Substance: SODIUM CHLORIDE
     Dosage: DOSE RE-INTRODUCED, EPIRUBICIN HYDROCHLORIDE POWDER FOR INJECTION + SODIUM CHLORIDE
     Route: 041
  2. PHARMORUBICIN [Suspect]
     Active Substance: EPIRUBICIN
     Indication: BREAST CANCER FEMALE
     Dosage: 1-3 CYCLES OF CHEMOTHERAPY, EPIRUBICIN HYDROCHLORIDE POWDER FOR INJECTION + SODIUM CHLORIDE
     Route: 041
  3. 0.9% SODIUM CHLORIDE INJECTION [Suspect]
     Active Substance: SODIUM CHLORIDE
     Dosage: FOURTH CHEMOTHERAPY, CYCLOPHOSPHAMIDE POWDER FOR INJECTION 950 MG + SODIUM CHLORIDE 50ML
     Route: 042
     Dates: start: 20200916, end: 20200916
  4. 0.9% SODIUM CHLORIDE INJECTION [Suspect]
     Active Substance: SODIUM CHLORIDE
     Dosage: FOURTH CHEMOTHERAPY, EPIRUBICIN HYDROCHLORIDE POWDER FOR INJECTION 140 MG + SODIUM CHLORIDE 100ML
     Route: 041
     Dates: start: 20200916, end: 20200916
  5. PHARMORUBICIN [Suspect]
     Active Substance: EPIRUBICIN
     Dosage: FOURTH CHEMOTHERAPY, EPIRUBICIN HYDROCHLORIDE POWDER FOR INJECTION 140 MG + SODIUM CHLORIDE 100ML
     Route: 041
     Dates: start: 20200916, end: 20200916
  6. ENDOXAN [Suspect]
     Active Substance: CYCLOPHOSPHAMIDE
     Dosage: FOURTH CHEMOTHERAPY, CYCLOPHOSPHAMIDE POWDER FOR INJECTION 950 MG + SODIUM CHLORIDE 50ML
     Route: 042
     Dates: start: 20200916, end: 20200916
  7. 0.9% SODIUM CHLORIDE INJECTION [Suspect]
     Active Substance: SODIUM CHLORIDE
     Dosage: 1-3 CYCLES OF CHEMOTHERAPY, EPIRUBICIN HYDROCHLORIDE POWDER FOR INJECTION + SODIUM CHLORIDE
     Route: 041
  8. ENDOXAN [Suspect]
     Active Substance: CYCLOPHOSPHAMIDE
     Indication: BREAST CANCER FEMALE
     Dosage: 1-3 CYCLES OF CHEMOTHERAPY, CYCLOPHOSPHAMIDE POWDER FOR INJECTION + SODIUM CHLORIDE.
     Route: 042
  9. ENDOXAN [Suspect]
     Active Substance: CYCLOPHOSPHAMIDE
     Dosage: DOSE RE-INTRODUCED, CYCLOPHOSPHAMIDE POWDER FOR INJECTION + SODIUM CHLORIDE
     Route: 042
  10. 0.9% SODIUM CHLORIDE INJECTION [Suspect]
     Active Substance: SODIUM CHLORIDE
     Indication: MEDICATION DILUTION
     Dosage: 1-3 CYCLES OF CHEMOTHERAPY, CYCLOPHOSPHAMIDE POWDER FOR INJECTION + SODIUM CHLORIDE.
     Route: 042
  11. 0.9% SODIUM CHLORIDE INJECTION [Suspect]
     Active Substance: SODIUM CHLORIDE
     Dosage: DOSE RE-INTRODUCED, CYCLOPHOSPHAMIDE POWDER FOR INJECTION + SODIUM CHLORIDE
     Route: 042
  12. PHARMORUBICIN [Suspect]
     Active Substance: EPIRUBICIN
     Dosage: DOSE RE-INTRODUCED, EPIRUBICIN HYDROCHLORIDE POWDER FOR INJECTION + SODIUM CHLORIDE
     Route: 041
  13. JINYOULI [Concomitant]
     Active Substance: ANF-RHO
     Indication: PROPHYLAXIS
     Route: 058
     Dates: start: 20200917

REACTIONS (1)
  - Agranulocytosis [Recovered/Resolved]

NARRATIVE: CASE EVENT DATE: 20200923
